FAERS Safety Report 9841320 (Version 5)
Quarter: 2017Q1

REPORT INFORMATION
  Report Type: Report from Study
  Country: FR (occurrence: FR)
  Receive Date: 20140124
  Receipt Date: 20170330
  Transmission Date: 20170429
  Serious: Yes (Hospitalization, Other)
  Sender: FDA-Public Use
  Company Number: PHHY2014FR006155

PATIENT
  Age: 36 Year
  Sex: Male

DRUGS (2)
  1. TASIGNA [Suspect]
     Active Substance: NILOTINIB
     Dosage: 400 MG, BID
     Route: 048
     Dates: start: 201401, end: 20140808
  2. TASIGNA [Suspect]
     Active Substance: NILOTINIB
     Indication: CHRONIC MYELOID LEUKAEMIA
     Dosage: 300 MG, BID
     Route: 048
     Dates: start: 20130624, end: 201401

REACTIONS (17)
  - Pyrexia [Recovered/Resolved]
  - Skin wound [Unknown]
  - Myalgia [Unknown]
  - General physical health deterioration [Recovered/Resolved]
  - Leukopenia [Unknown]
  - Cough [Recovered/Resolved]
  - Neutropenia [Recovered/Resolved]
  - Decreased appetite [Unknown]
  - Drug ineffective [Unknown]
  - Asthenia [Recovered/Resolved]
  - Bronchitis [Recovered/Resolved]
  - Sputum discoloured [Recovered/Resolved]
  - Gene mutation identification test positive [Unknown]
  - Pain in extremity [Unknown]
  - Anaemia [Recovered/Resolved]
  - Dyspnoea exertional [Recovered/Resolved]
  - Fatigue [Unknown]

NARRATIVE: CASE EVENT DATE: 201312
